FAERS Safety Report 6815772-6 (Version None)
Quarter: 2010Q3

REPORT INFORMATION
  Report Type: 
  Country: None (occurrence: None)
  Receive Date: 20100705
  Receipt Date: 20100624
  Transmission Date: 20110219
  Serious: Yes (Hospitalization)
  Sender: FDA-Public Use
  Company Number: JP-MERCK-1005USA02324

PATIENT
  Age: 48 Year
  Sex: Female

DRUGS (8)
  1. ZETIA [Suspect]
     Indication: HYPERCHOLESTEROLAEMIA
     Route: 048
     Dates: start: 20100315
  2. CLOTIAZEPAM [Concomitant]
     Route: 065
     Dates: start: 20020210
  3. METHYLPREDNISOLONE [Concomitant]
     Route: 065
     Dates: start: 20020215
  4. ALLOPURINOL [Concomitant]
     Route: 065
     Dates: start: 20020216
  5. SENNA [Concomitant]
     Route: 065
     Dates: start: 19940808
  6. ROXATIDINE ACETATE HYDROCHLORIDE [Concomitant]
     Route: 065
     Dates: start: 20020218
  7. MYCOPHENOLATE MOFETIL [Concomitant]
     Route: 065
     Dates: start: 20020215
  8. TACROLIMUS [Concomitant]
     Route: 065
     Dates: start: 20020217

REACTIONS (1)
  - ILEUS [None]
